FAERS Safety Report 6544782-1 (Version None)
Quarter: 2010Q1

REPORT INFORMATION
  Report Type: 
  Country: None (occurrence: None)
  Receive Date: 20100121
  Receipt Date: 20100106
  Transmission Date: 20100710
  Serious: Yes (Other)
  Sender: FDA-Public Use
  Company Number: US-BAYER-200936641NA

PATIENT
  Age: 79 Year
  Sex: Male
  Weight: 69 kg

DRUGS (32)
  1. MAGNEVIST [Suspect]
     Indication: NUCLEAR MAGNETIC RESONANCE IMAGING
  2. OMNISCAN [Suspect]
     Indication: NUCLEAR MAGNETIC RESONANCE IMAGING
     Route: 042
     Dates: start: 20060503, end: 20060503
  3. OMNISCAN [Suspect]
     Dosage: TOTAL DAILY DOSE: 35 ML
     Route: 042
     Dates: start: 20070727
  4. OPTIMARK [Suspect]
     Indication: NUCLEAR MAGNETIC RESONANCE IMAGING
  5. MULTIHANCE [Suspect]
     Indication: NUCLEAR MAGNETIC RESONANCE IMAGING
  6. PROHANCE [Suspect]
     Indication: NUCLEAR MAGNETIC RESONANCE IMAGING
  7. UNSPECIFIED GBCA [Suspect]
     Indication: ANGIOGRAM
     Route: 042
     Dates: start: 20050923, end: 20050923
  8. UNSPECIFIED GBCA [Suspect]
     Dates: start: 20061009, end: 20061009
  9. UNSPECIFIED GBCA [Suspect]
     Dates: start: 20061127, end: 20061127
  10. UNSPECIFIED GBCA [Suspect]
     Dates: start: 20061204, end: 20061204
  11. UNSPECIFIED GBCA [Suspect]
     Dates: start: 20060104, end: 20060104
  12. UNSPECIFIED GBCA [Suspect]
     Dates: start: 20020313, end: 20020313
  13. UNSPECIFIED GBCA [Suspect]
     Dates: start: 20070517, end: 20070517
  14. UNSPECIFIED GBCA [Suspect]
     Dates: start: 20061101, end: 20061101
  15. LISINOPRIL [Concomitant]
     Indication: HYPERTENSION
  16. METOPROLOL [Concomitant]
  17. HYDROCHLOROTHIAZIDE [Concomitant]
  18. SIMVASTATIN [Concomitant]
     Indication: BLOOD CHOLESTEROL INCREASED
  19. SPIRONOLACTONE [Concomitant]
  20. COREG [Concomitant]
  21. PLAVIX [Concomitant]
  22. FUROSEMIDE [Concomitant]
     Indication: CARDIAC FAILURE CONGESTIVE
  23. AMITRIPTYLINE [Concomitant]
  24. ISOSORBIDE [Concomitant]
     Indication: CHEST PAIN
  25. RENAGEL [Concomitant]
     Indication: HYPOCALCAEMIA
  26. RENAL CAPS [Concomitant]
  27. PROTONIX [Concomitant]
  28. FOSAMAX [Concomitant]
  29. ALBUTEROL [Concomitant]
  30. CEPHALEXIN [Concomitant]
  31. EPOGEN [Concomitant]
  32. OMNIPAQUE 140 [Concomitant]
     Indication: ANGIOGRAM

REACTIONS (18)
  - DRY SKIN [None]
  - JOINT RANGE OF MOTION DECREASED [None]
  - LICHENIFICATION [None]
  - MUSCULOSKELETAL STIFFNESS [None]
  - NEPHROGENIC SYSTEMIC FIBROSIS [None]
  - OEDEMA [None]
  - OEDEMA PERIPHERAL [None]
  - PAIN [None]
  - PEAU D'ORANGE [None]
  - PIGMENTATION DISORDER [None]
  - RASH [None]
  - RASH PAPULAR [None]
  - SKIN DISORDER [None]
  - SKIN EXFOLIATION [None]
  - SKIN HYPERTROPHY [None]
  - SKIN INDURATION [None]
  - SKIN TIGHTNESS [None]
  - SKIN ULCER [None]
